FAERS Safety Report 20061586 (Version 1)
Quarter: 2021Q4

REPORT INFORMATION
  Report Type: Spontaneous
  Country: TW (occurrence: TW)
  Receive Date: 20211112
  Receipt Date: 20211112
  Transmission Date: 20220303
  Serious: Yes (Other)
  Sender: FDA-Public Use
  Company Number: TW-BAYER-2021A247902

PATIENT
  Age: 46 Year
  Sex: Male

DRUGS (3)
  1. NEXAVAR [Suspect]
     Active Substance: SORAFENIB
     Indication: Hepatic cancer
     Dosage: UNK
     Route: 048
     Dates: start: 202003
  2. NEXAVAR [Suspect]
     Active Substance: SORAFENIB
     Indication: Hepatic cancer
     Dosage: UNK
     Route: 048
     Dates: end: 2020
  3. STIVARGA [Suspect]
     Active Substance: REGORAFENIB
     Indication: Hepatic cancer
     Dosage: UNK
     Route: 048
     Dates: start: 2020

REACTIONS (1)
  - Hepatic cancer [None]

NARRATIVE: CASE EVENT DATE: 20200101
